FAERS Safety Report 9012053 (Version 1)
Quarter: 2012Q4

REPORT INFORMATION
  Report Type: Spontaneous
  Country: DK (occurrence: None)
  Receive Date: 20121228
  Receipt Date: 20121228
  Transmission Date: 20130627
  Serious: Yes (Other)
  Sender: FDA-Public Use
  Company Number: 2012MA014315

PATIENT
  Sex: Male

DRUGS (7)
  1. RAMIPRIL [Suspect]
     Indication: BLOOD CHOLESTEROL
  2. FLUVASTATIN [Concomitant]
  3. IMDUR [Concomitant]
  4. TILDIEM [Concomitant]
  5. BISOPROLOL [Concomitant]
  6. NICOANDIL [Concomitant]
  7. RAMIPRIL [Concomitant]

REACTIONS (6)
  - Capsule physical issue [None]
  - Decreased appetite [None]
  - Throat tightness [None]
  - Drug effect decreased [None]
  - Vascular graft [None]
  - Transurethral prostatectomy [None]
